FAERS Safety Report 24223994 (Version 1)
Quarter: 2024Q3

REPORT INFORMATION
  Report Type: Spontaneous
  Country: GB (occurrence: GB)
  Receive Date: 20240819
  Receipt Date: 20240819
  Transmission Date: 20241017
  Serious: Yes (Life-Threatening, Hospitalization, Disabling, Other)
  Sender: BOEHRINGER INGELHEIM
  Company Number: None

PATIENT
  Age: 34 Year
  Sex: Female
  Weight: 156 kg

DRUGS (1)
  1. DABIGATRAN [Suspect]
     Active Substance: DABIGATRAN
     Indication: Pulmonary embolism
     Dosage: CONFIRMS TAKING DOSE ON THE NIGHT OF 08/08
     Dates: start: 20240724

REACTIONS (5)
  - Embolic stroke [Recovering/Resolving]
  - Pulmonary embolism [Recovering/Resolving]
  - Cerebrovascular accident [Unknown]
  - Cerebral infarction [Unknown]
  - Contraindicated product administered [Unknown]

NARRATIVE: CASE EVENT DATE: 20240809
